FAERS Safety Report 6782728-1 (Version None)
Quarter: 2010Q2

REPORT INFORMATION
  Report Type: 
  Country: None (occurrence: None)
  Receive Date: 20100621
  Receipt Date: 20100611
  Transmission Date: 20101027
  Serious: Yes (Other)
  Sender: FDA-Public Use
  Company Number: FR-ABBOTT-10P-056-0650779-00

PATIENT
  Age: 51 Year
  Sex: Female

DRUGS (1)
  1. SEROPLEX FILM COATED-TABLETS [Suspect]
     Indication: DEPRESSION
     Route: 048
     Dates: start: 20100504

REACTIONS (1)
  - SUICIDE ATTEMPT [None]
